FAERS Safety Report 20637091 (Version 1)
Quarter: 2022Q1

REPORT INFORMATION
  Report Type: Spontaneous
  Country: US (occurrence: US)
  Receive Date: 20220325
  Receipt Date: 20220325
  Transmission Date: 20220423
  Serious: No
  Sender: FDA-Public Use
  Company Number: US-GW PHARMA-202203USGW01482

PATIENT
  Sex: Male
  Weight: 65.76 kg

DRUGS (2)
  1. EPIDIOLEX [Suspect]
     Active Substance: CANNABIDIOL
     Indication: Lennox-Gastaut syndrome
     Dosage: 12.17 MG/KG/DAY, 400 MILLIGRAM, BID
     Route: 048
     Dates: start: 202112, end: 20220321
  2. EPIDIOLEX [Suspect]
     Active Substance: CANNABIDIOL
     Indication: Idiopathic generalised epilepsy

REACTIONS (3)
  - Loss of personal independence in daily activities [Unknown]
  - Diarrhoea [Unknown]
  - Somnolence [Unknown]
